FAERS Safety Report 21659955 (Version 1)
Quarter: 2022Q4

REPORT INFORMATION
  Report Type: Report from Study
  Country: CA (occurrence: CA)
  Receive Date: 20221130
  Receipt Date: 20221130
  Transmission Date: 20230113
  Serious: Yes (Life-Threatening, Hospitalization)
  Sender: FDA-Public Use
  Company Number: CA-JNJFOC-20221161585

PATIENT
  Age: 80 Year
  Sex: Male

DRUGS (2)
  1. ZYTIGA [Suspect]
     Active Substance: ABIRATERONE ACETATE
     Indication: Prostate cancer metastatic
     Dosage: FREQUENCY 2 TABLETS IN 1 DAY
     Route: 048
  2. PREDNISONE [Concomitant]
     Active Substance: PREDNISONE
     Indication: Prostate cancer metastatic
     Route: 048

REACTIONS (1)
  - Cerebrovascular accident [Recovering/Resolving]

NARRATIVE: CASE EVENT DATE: 20221119
